FAERS Safety Report 6675075-X (Version None)
Quarter: 2010Q2

REPORT INFORMATION
  Report Type: 
  Country: None (occurrence: None)
  Receive Date: 20100409
  Receipt Date: 20100329
  Transmission Date: 20101027
  Serious: Yes (Other)
  Sender: FDA-Public Use
  Company Number: US-TEVA-229208USA

PATIENT
  Sex: Female
  Weight: 124.85 kg

DRUGS (1)
  1. SALBUTAMOL SULFATE INHALATION, 0.09 MG [Suspect]
     Indication: ASTHMA
     Route: 055
     Dates: start: 20100118, end: 20100118

REACTIONS (5)
  - DYSPNOEA [None]
  - DYSURIA [None]
  - LIP AND/OR ORAL CAVITY CANCER [None]
  - ORAL DISCOMFORT [None]
  - RESPIRATORY TRACT IRRITATION [None]
